FAERS Safety Report 6695069-8 (Version None)
Quarter: 2010Q2

REPORT INFORMATION
  Report Type: 
  Country: None (occurrence: None)
  Receive Date: 20100423
  Receipt Date: 20100414
  Transmission Date: 20101027
  Serious: Yes (Other)
  Sender: FDA-Public Use
  Company Number: PHHY2010FR23294

PATIENT
  Age: 53 Year
  Sex: Male

DRUGS (4)
  1. SANDOSTATIN [Suspect]
     Indication: HYPERTENSION
     Dosage: 200 MG, TID
     Route: 058
     Dates: end: 20100306
  2. ESOMEPRAZOLE [Concomitant]
     Dosage: UNK
  3. IMIPENEM [Concomitant]
     Dosage: UNK
  4. NEFORPAM [Concomitant]
     Dosage: UNK

REACTIONS (6)
  - BLOOD PRESSURE SYSTOLIC INCREASED [None]
  - CYANOSIS [None]
  - HYPERTENSION [None]
  - HYPERTENSIVE CRISIS [None]
  - SKIN DISORDER [None]
  - TACHYCARDIA [None]
